FAERS Safety Report 5671860-1 (Version None)
Quarter: 2008Q1

REPORT INFORMATION
  Report Type: 
  Country: None (occurrence: None)
  Receive Date: 20080317
  Receipt Date: 20080317
  Transmission Date: 20080703
  Serious: Yes (Other)
  Sender: FDA-Public Use
  Company Number: None

PATIENT
  Sex: Male
  Weight: 70.3075 kg

DRUGS (1)
  1. LIPITOR [Suspect]
     Dosage: 10 MG -SPLIT PILLS- DAILY  PO
     Route: 048
     Dates: start: 20000101, end: 20080303

REACTIONS (4)
  - ASTHENIA [None]
  - FATIGUE [None]
  - MUSCLE ATROPHY [None]
  - PERFORMANCE STATUS DECREASED [None]
